FAERS Safety Report 20204631 (Version 4)
Quarter: 2022Q2

REPORT INFORMATION
  Report Type: Report from Study
  Country: NL (occurrence: NL)
  Receive Date: 20211220
  Receipt Date: 20220519
  Transmission Date: 20220721
  Serious: Yes (Hospitalization, Other)
  Sender: FDA-Public Use
  Company Number: NL-ABBVIE-21K-114-4202736-00

PATIENT
  Age: 48 Year
  Sex: Female

DRUGS (5)
  1. CARBIDOPA\LEVODOPA [Suspect]
     Active Substance: CARBIDOPA\LEVODOPA
     Indication: Parkinson^s disease
     Route: 050
     Dates: start: 20190312
  2. CARBIDOPA\LEVODOPA [Suspect]
     Active Substance: CARBIDOPA\LEVODOPA
     Dosage: MD: 7.7ML, CD: 6.5ML/H, ED: 3.0ML, END: 1.8ML, CND: 3.5ML/H
     Route: 050
  3. CARBIDOPA\LEVODOPA [Suspect]
     Active Substance: CARBIDOPA\LEVODOPA
     Dosage: MD: 7.7ML, CD: 6.2ML/H, ED: 3.5ML, END: 2.5ML, CND: 3.8ML/H
     Route: 050
  4. CARBIDOPA\LEVODOPA [Suspect]
     Active Substance: CARBIDOPA\LEVODOPA
     Dosage: MD: 7.7ML, CD: 6.1ML/H (AM) AND CD: 6.3ML/H (PM), ED: 3.8ML, CND: 4.1ML/H, END: 2.5ML
     Route: 050
     Dates: start: 20220511
  5. MOVICOLON [Concomitant]
     Active Substance: POLYETHYLENE GLYCOL 3350\POTASSIUM CHLORIDE\SODIUM BICARBONATE\SODIUM CHLORIDE
     Indication: Product used for unknown indication

REACTIONS (21)
  - Multiple system atrophy [Not Recovered/Not Resolved]
  - Urinary tract infection [Recovered/Resolved]
  - Unresponsive to stimuli [Not Recovered/Not Resolved]
  - Memory impairment [Unknown]
  - Abnormal faeces [Not Recovered/Not Resolved]
  - Restlessness [Not Recovered/Not Resolved]
  - Mental impairment [Not Recovered/Not Resolved]
  - General physical health deterioration [Not Recovered/Not Resolved]
  - Stress [Not Recovered/Not Resolved]
  - Tension [Not Recovered/Not Resolved]
  - Hypophagia [Not Recovered/Not Resolved]
  - Musculoskeletal stiffness [Not Recovered/Not Resolved]
  - Device connection issue [Recovered/Resolved]
  - Fall [Recovered/Resolved]
  - Dystonia [Unknown]
  - Confusional state [Not Recovered/Not Resolved]
  - Dyskinesia [Not Recovered/Not Resolved]
  - On and off phenomenon [Not Recovered/Not Resolved]
  - Hallucination [Recovering/Resolving]
  - Overdose [Recovered/Resolved]
  - Stoma site inflammation [Not Recovered/Not Resolved]

NARRATIVE: CASE EVENT DATE: 20220301
